FAERS Safety Report 13325553 (Version 2)
Quarter: 2017Q2

REPORT INFORMATION
  Report Type: Report from Study
  Country: US (occurrence: US)
  Receive Date: 20170310
  Receipt Date: 20170403
  Transmission Date: 20170830
  Serious: Yes (Hospitalization, Other)
  Sender: FDA-Public Use
  Company Number: US-JNJFOC-20161220488

PATIENT
  Age: 73 Year
  Sex: Female

DRUGS (11)
  1. IMBRUVICA [Suspect]
     Active Substance: IBRUTINIB
     Indication: CHRONIC LYMPHOCYTIC LEUKAEMIA
     Route: 048
     Dates: start: 20161210, end: 2017
  2. ALLOPURINOL. [Concomitant]
     Active Substance: ALLOPURINOL
     Route: 048
  3. MAGNESIUM [Concomitant]
     Active Substance: MAGNESIUM
  4. VITAMIN D [Concomitant]
     Active Substance: CHOLECALCIFEROL
  5. HYDROCODONE [Concomitant]
     Active Substance: HYDROCODONE
  6. SYNTHROID [Concomitant]
     Active Substance: LEVOTHYROXINE SODIUM
  7. POTASSIUM [Concomitant]
     Active Substance: POTASSIUM
  8. ZYRTEC [Concomitant]
     Active Substance: CETIRIZINE HYDROCHLORIDE
  9. IMBRUVICA [Suspect]
     Active Substance: IBRUTINIB
     Indication: CHRONIC LYMPHOCYTIC LEUKAEMIA
     Route: 048
     Dates: start: 20161212, end: 20170228
  10. CALCIUM [Concomitant]
     Active Substance: CALCIUM
  11. HYDROCODONE/ACETAMINOPHEN [Concomitant]
     Active Substance: ACETAMINOPHEN\HYDROCODONE

REACTIONS (19)
  - Hypoaesthesia [Not Recovered/Not Resolved]
  - Oedema peripheral [Not Recovered/Not Resolved]
  - Skin discolouration [Not Recovered/Not Resolved]
  - Drug dose omission [Recovered/Resolved]
  - Sternal fracture [Unknown]
  - Respiration abnormal [Unknown]
  - Bone disorder [Unknown]
  - White blood cell count decreased [Unknown]
  - Compression fracture [Not Recovered/Not Resolved]
  - Blood count abnormal [Unknown]
  - Peripheral coldness [Not Recovered/Not Resolved]
  - Stress fracture [Unknown]
  - Dysgeusia [Not Recovered/Not Resolved]
  - Blood potassium decreased [Recovered/Resolved]
  - Spinal cord compression [Not Recovered/Not Resolved]
  - Blood magnesium decreased [Recovered/Resolved]
  - Weight decreased [Not Recovered/Not Resolved]
  - Lymphadenopathy [Recovered/Resolved]
  - Decreased appetite [Not Recovered/Not Resolved]

NARRATIVE: CASE EVENT DATE: 2016
